FAERS Safety Report 6538601-7 (Version None)
Quarter: 2010Q1

REPORT INFORMATION
  Report Type: 
  Country: None (occurrence: None)
  Receive Date: 20100113
  Receipt Date: 20100113
  Transmission Date: 20100710
  Serious: No
  Sender: FDA-Public Use
  Company Number: None

PATIENT
  Age: 90 Year
  Sex: Male
  Weight: 78 kg

DRUGS (5)
  1. AVANDIA [Suspect]
     Indication: DIABETES MELLITUS
     Dosage: 4MG QDAY PO OUTPATIENT
     Route: 048
  2. PROTONIX [Concomitant]
  3. LEXAPRO [Concomitant]
  4. ZYREA [Concomitant]
  5. COLAIM CARBONATE [Concomitant]

REACTIONS (2)
  - BLOOD GLUCOSE DECREASED [None]
  - HYPOTENSION [None]
